FAERS Safety Report 22112931 (Version 1)
Quarter: 2023Q1

REPORT INFORMATION
  Report Type: Spontaneous
  Country: US (occurrence: US)
  Receive Date: 20230320
  Receipt Date: 20230320
  Transmission Date: 20230418
  Serious: Yes (Hospitalization, Other)
  Sender: FDA-Public Use
  Company Number: US-AMGEN-USASP2023045211

PATIENT
  Age: 39 Year
  Sex: Male

DRUGS (4)
  1. RITUXIMAB [Suspect]
     Active Substance: RITUXIMAB
     Indication: Granulomatosis with polyangiitis
     Dosage: UNK
     Route: 065
  2. PRIVIGEN [Concomitant]
     Active Substance: HUMAN IMMUNOGLOBULIN G
     Indication: Product used for unknown indication
     Dosage: UNK
     Route: 065
  3. PRIVIGEN [Concomitant]
     Active Substance: HUMAN IMMUNOGLOBULIN G
     Dosage: 0.5 GRAM/KG
     Route: 065
     Dates: start: 20220308
  4. COVID-19 vaccine [Concomitant]
     Indication: COVID-19
     Dosage: UNK
     Route: 065

REACTIONS (3)
  - COVID-19 pneumonia [Recovering/Resolving]
  - Cell-mediated immune deficiency [Not Recovered/Not Resolved]
  - Immunoglobulins decreased [Recovering/Resolving]

NARRATIVE: CASE EVENT DATE: 20211108
